FAERS Safety Report 23871087 (Version 1)
Quarter: 2024Q2

REPORT INFORMATION
  Report Type: Spontaneous
  Country: US (occurrence: US)
  Receive Date: 20240518
  Receipt Date: 20240518
  Transmission Date: 20240716
  Serious: No
  Sender: FDA-Public Use
  Company Number: US-ABBVIE-5758212

PATIENT
  Sex: Female

DRUGS (2)
  1. RINVOQ [Suspect]
     Active Substance: UPADACITINIB
     Indication: Dermatitis atopic
     Route: 048
     Dates: end: 20240503
  2. RINVOQ [Suspect]
     Active Substance: UPADACITINIB
     Indication: Dermatitis atopic
     Route: 048
     Dates: start: 20240506

REACTIONS (6)
  - Hepatic enzyme increased [Unknown]
  - Therapeutic product effect decreased [Unknown]
  - Fatigue [Unknown]
  - Brain fog [Unknown]
  - Pruritus [Unknown]
  - Anxiety [Unknown]

NARRATIVE: CASE EVENT DATE: 20240506
